FAERS Safety Report 8144292-4 (Version None)
Quarter: 2012Q1

REPORT INFORMATION
  Report Type: 
  Country: None (occurrence: None)
  Receive Date: 20120217
  Receipt Date: 20120209
  Transmission Date: 20120608
  Serious: Yes (Hospitalization)
  Sender: FDA-Public Use
  Company Number: JP-SANOFI-AVENTIS-2011SA083555

PATIENT
  Sex: Female
  Weight: 33.2 kg

DRUGS (13)
  1. LANTUS [Concomitant]
     Dosage: DOSE:6 UNIT(S)
     Dates: start: 20090608, end: 20090710
  2. INSULIN GLULISINE [Suspect]
     Dosage: MORE THAN 300 4U
     Route: 065
     Dates: start: 20100802, end: 20100914
  3. METFORMIN HCL [Concomitant]
     Route: 048
     Dates: start: 20060309
  4. LANTUS [Concomitant]
     Indication: DIABETES MELLITUS
     Dosage: DOSE:10 UNIT(S)
     Dates: start: 20090520, end: 20090607
  5. LANSOPRAZOLE [Concomitant]
     Route: 048
  6. VOGLIBOSE [Concomitant]
     Route: 048
     Dates: start: 20090525
  7. LANTUS [Concomitant]
     Dosage: DOSE:8 UNIT(S)
     Dates: start: 20090711, end: 20090925
  8. CORINAEL [Concomitant]
     Route: 048
  9. LANTUS [Concomitant]
     Dosage: DOSE:10 UNIT(S)
     Dates: start: 20090926, end: 20091021
  10. ALL OTHER THERAPEUTIC PRODUCTS [Concomitant]
     Route: 048
  11. LANTUS [Concomitant]
     Dosage: DOSE:12 UNIT(S)
     Dates: start: 20091022
  12. INSULIN GLULISINE [Suspect]
     Dosage: DOSE IN EVENING: MORE THAN 200 4U, MORE THAN 300 6 U
     Route: 065
     Dates: start: 20100306, end: 20100801
  13. PRAVASTATIN SODIUM [Concomitant]
     Route: 048

REACTIONS (1)
  - DECREASED ACTIVITY [None]
